FAERS Safety Report 14766539 (Version 2)
Quarter: 2018Q2

REPORT INFORMATION
  Report Type: Report from Study
  Country: BR (occurrence: BR)
  Receive Date: 20180416
  Receipt Date: 20180503
  Transmission Date: 20180711
  Serious: Yes (Other)
  Sender: FDA-Public Use
  Company Number: PHHY2018BR058540

PATIENT
  Sex: Male
  Weight: 103 kg

DRUGS (5)
  1. DIOVAN HCT [Suspect]
     Active Substance: HYDROCHLOROTHIAZIDE\VALSARTAN
     Dosage: 2 DF, QD
     Route: 048
  2. DIOVAN HCT [Suspect]
     Active Substance: HYDROCHLOROTHIAZIDE\VALSARTAN
     Indication: HYPERTENSION
     Dosage: 1 DF (HYDROCHLOROTHIAZIDE 12.5, VALSARTAN 160 MG), QD IN THE MORNING
     Route: 048
  3. ALLOPURINOL. [Concomitant]
     Active Substance: ALLOPURINOL
     Indication: BLOOD URIC ACID ABNORMAL
     Dosage: 1 DF, QD LUNCH
     Route: 048
     Dates: start: 20180313
  4. GALVUS [Suspect]
     Active Substance: VILDAGLIPTIN
     Indication: RENAL DISORDER
     Dosage: 1 DF, QD IN THE MORNING AFTER BREAKFAST
     Route: 048
     Dates: start: 20180313
  5. DIOVAN [Suspect]
     Active Substance: VALSARTAN
     Indication: HYPERTENSION
     Dosage: 160 MG, STARTED 3 YEARS AGO
     Route: 048

REACTIONS (11)
  - Blood uric acid increased [Recovering/Resolving]
  - Mental disorder [Recovered/Resolved]
  - Product use in unapproved indication [Unknown]
  - Diabetes mellitus [Recovering/Resolving]
  - Blood pressure fluctuation [Recovered/Resolved]
  - Gout [Recovered/Resolved]
  - Pain in extremity [Recovering/Resolving]
  - Pyrexia [Unknown]
  - Blood pressure increased [Recovered/Resolved]
  - Hypophagia [Not Recovered/Not Resolved]
  - Drug prescribing error [Unknown]
